FAERS Safety Report 17163154 (Version 1)
Quarter: 2019Q4

REPORT INFORMATION
  Report Type: Spontaneous
  Country: US (occurrence: US)
  Receive Date: 20191217
  Receipt Date: 20191217
  Transmission Date: 20200122
  Serious: No
  Sender: FDA-Public Use
  Company Number: US-AMGEN-USASP2019208322

PATIENT
  Age: 72 Year
  Sex: Male

DRUGS (1)
  1. XGEVA [Suspect]
     Active Substance: DENOSUMAB
     Indication: PROSTATE CANCER STAGE IV
     Dosage: 120 MILLIGRAM, Q4WK
     Route: 065
     Dates: start: 2018

REACTIONS (1)
  - Toothache [Unknown]

NARRATIVE: CASE EVENT DATE: 201912
